FAERS Safety Report 18052085 (Version 1)
Quarter: 2020Q3

REPORT INFORMATION
  Report Type: Spontaneous
  Country: US (occurrence: US)
  Receive Date: 20200722
  Receipt Date: 20200722
  Transmission Date: 20201103
  Serious: Yes (Other)
  Sender: FDA-Public Use
  Company Number: US-DRREDDYS-USA/USA/20/0125212

PATIENT
  Age: 55 Year
  Sex: Male

DRUGS (8)
  1. IBUPROFEN. [Concomitant]
     Active Substance: IBUPROFEN
     Indication: PRODUCT USED FOR UNKNOWN INDICATION
  2. PROGESTERONE CAPSULES [Suspect]
     Active Substance: PROGESTERONE
     Indication: GENDER DYSPHORIA
  3. ESTRADIOL. [Suspect]
     Active Substance: ESTRADIOL
     Indication: GENDER DYSPHORIA
     Route: 048
  4. SPIRONOLACTONE. [Concomitant]
     Active Substance: SPIRONOLACTONE
     Indication: PRODUCT USED FOR UNKNOWN INDICATION
  5. ESTRADIOL. [Suspect]
     Active Substance: ESTRADIOL
     Route: 048
  6. MEDROXYPROGESTERONE [Concomitant]
     Active Substance: MEDROXYPROGESTERONE
     Indication: PRODUCT USED FOR UNKNOWN INDICATION
  7. LISINOPRIL. [Concomitant]
     Active Substance: LISINOPRIL
     Indication: PRODUCT USED FOR UNKNOWN INDICATION
     Route: 065
  8. ESTRADIOL. [Suspect]
     Active Substance: ESTRADIOL
     Indication: GENDER REASSIGNMENT THERAPY
     Route: 048

REACTIONS (4)
  - Unmasking of previously unidentified disease [Recovered/Resolved]
  - Drug level above therapeutic [Unknown]
  - Transaminases increased [Unknown]
  - Porphyria non-acute [Recovered/Resolved]
